FAERS Safety Report 4618833-5 (Version None)
Quarter: 2005Q1

REPORT INFORMATION
  Report Type: 
  Country: None (occurrence: None)
  Receive Date: 20050323
  Receipt Date: 20050308
  Transmission Date: 20050727
  Serious: Yes (Hospitalization, Other)
  Sender: FDA-Public Use
  Company Number: USA040361819

PATIENT
  Age: 49 Year
  Sex: Female

DRUGS (5)
  1. ILETIN-PORK NPH INSULIN (INSULIN, ANIMAL) [Suspect]
     Dates: start: 19680901
  2. REGULAR ILETIN II (PORK) [Suspect]
     Dates: start: 19680101
  3. ILETIN [Suspect]
     Dates: start: 19680101
  4. HUMULIN N [Suspect]
  5. LISINOPRIL [Concomitant]

REACTIONS (24)
  - BLINDNESS UNILATERAL [None]
  - BLOOD GLUCOSE FLUCTUATION [None]
  - DRUG EXPOSURE DURING PREGNANCY [None]
  - DRUG HYPERSENSITIVITY [None]
  - DRUG INEFFECTIVE [None]
  - FURUNCLE [None]
  - IMPAIRED HEALING [None]
  - INJECTION SITE NODULE [None]
  - INJECTION SITE URTICARIA [None]
  - INSULIN RESISTANCE [None]
  - JOINT SPRAIN [None]
  - KETOACIDOSIS [None]
  - LIPID METABOLISM DISORDER [None]
  - MEDICATION ERROR [None]
  - OPTIC NERVE INJURY [None]
  - PHARMACEUTICAL PRODUCT COMPLAINT [None]
  - PREGNANCY [None]
  - RASH [None]
  - SKIN DISORDER [None]
  - SKIN NODULE [None]
  - VESSEL PUNCTURE SITE REACTION [None]
  - VISUAL DISTURBANCE [None]
  - WEIGHT DECREASED [None]
  - WOUND SECRETION [None]
